FAERS Safety Report 5857804-8 (Version None)
Quarter: 2008Q3

REPORT INFORMATION
  Report Type: 
  Country: None (occurrence: None)
  Receive Date: 20080818
  Receipt Date: 20080522
  Transmission Date: 20090109
  Serious: No
  Sender: FDA-Public Use
  Company Number: WAES 0806USA01240

PATIENT
  Age: 40 Year
  Sex: Female

DRUGS (4)
  1. JANUVIA [Suspect]
     Indication: DIABETES MELLITUS
     Dosage: PO
     Route: 048
  2. AMARYL [Concomitant]
  3. LEVEMIR [Concomitant]
  4. NOVOLOG [Concomitant]

REACTIONS (1)
  - RASH PRURITIC [None]
